FAERS Safety Report 5978839-0 (Version None)
Quarter: 2008Q4

REPORT INFORMATION
  Report Type: 
  Country: None (occurrence: None)
  Receive Date: 20081204
  Receipt Date: 20081126
  Transmission Date: 20090506
  Serious: Yes (Hospitalization)
  Sender: FDA-Public Use
  Company Number: PHBS2008HR06479

PATIENT
  Age: 35 Year
  Sex: Female
  Weight: 54 kg

DRUGS (3)
  1. OCTREOTIDE ACETATE [Suspect]
     Indication: ENDOCRINE NEOPLASM
     Dosage: 50 UG, BID
     Route: 058
     Dates: start: 20050601
  2. LEVOTHYROXINE SODIUM [Concomitant]
  3. BETA BLOCKING AGENTS [Concomitant]

REACTIONS (3)
  - DIARRHOEA [None]
  - HYPERTENSIVE CRISIS [None]
  - MALIGNANT NEOPLASM PROGRESSION [None]
